FAERS Safety Report 18846262 (Version 2)
Quarter: 2022Q1

REPORT INFORMATION
  Report Type: Spontaneous
  Country: JP (occurrence: JP)
  Receive Date: 20210204
  Receipt Date: 20220128
  Transmission Date: 20220423
  Serious: Yes (Hospitalization, Disabling)
  Sender: FDA-Public Use
  Company Number: JP-NOVOPROD-782897

PATIENT
  Age: 44 Year
  Sex: Male

DRUGS (5)
  1. RYZODEG 70/30 [Suspect]
     Active Substance: INSULIN ASPART\INSULIN DEGLUDEC
     Dosage: ADMINISTERED ABOUT EIGHT CARTRIDGES OF RYZODEG FLEXTOUCH
     Route: 058
     Dates: start: 20190722
  2. RYZODEG 70/30 [Suspect]
     Active Substance: INSULIN ASPART\INSULIN DEGLUDEC
     Indication: Type 2 diabetes mellitus
     Dosage: UNK
     Route: 058
  3. GLIMEPIRIDE [Concomitant]
     Active Substance: GLIMEPIRIDE
     Indication: Type 2 diabetes mellitus
     Dosage: 1 MG, QD
     Route: 048
  4. ATORVASTATIN [Concomitant]
     Active Substance: ATORVASTATIN
     Indication: Dyslipidaemia
     Dosage: 10 MG, QD
     Route: 048
  5. SITAGLIPTIN PHOSPHATE [Concomitant]
     Active Substance: SITAGLIPTIN PHOSPHATE
     Indication: Type 2 diabetes mellitus
     Dosage: 50 MG, QD
     Route: 048

REACTIONS (3)
  - Suicidal ideation [Unknown]
  - Hypoglycaemic unconsciousness [Recovered/Resolved with Sequelae]
  - Intentional overdose [Unknown]

NARRATIVE: CASE EVENT DATE: 20190722
